FAERS Safety Report 4543197-5 (Version None)
Quarter: 2004Q4

REPORT INFORMATION
  Report Type: 
  Country: None (occurrence: None)
  Receive Date: 20041230
  Receipt Date: 20041228
  Transmission Date: 20050328
  Serious: Yes (Death)
  Sender: FDA-Public Use
  Company Number: 04-12-1807

PATIENT
  Age: 68 Year
  Sex: Male

DRUGS (1)
  1. CLOZAPINE [Suspect]
     Indication: SCHIZOAFFECTIVE DISORDER
     Dosage: 25-300MG QD, ORAL
     Route: 048
     Dates: start: 20011201, end: 20041201

REACTIONS (1)
  - CARDIAC ARREST [None]
